FAERS Safety Report 10515164 (Version 3)
Quarter: 2014Q4

REPORT INFORMATION
  Report Type: Report from Study
  Country: US (occurrence: US)
  Receive Date: 20141014
  Receipt Date: 20141021
  Transmission Date: 20150528
  Serious: Yes (Other)
  Sender: FDA-Public Use
  Company Number: PHEH2014US017891

PATIENT
  Age: 60 Year
  Sex: Male

DRUGS (1)
  1. GILENYA [Suspect]
     Active Substance: FINGOLIMOD HYDROCHLORIDE
     Indication: RELAPSING-REMITTING MULTIPLE SCLEROSIS
     Dosage: 0.5 MG, DAILY
     Route: 048
     Dates: start: 20140627, end: 20141008

REACTIONS (3)
  - Macular oedema [Unknown]
  - Vision blurred [Not Recovered/Not Resolved]
  - Retinal oedema [Not Recovered/Not Resolved]

NARRATIVE: CASE EVENT DATE: 20140801
